FAERS Safety Report 5015942-6 (Version None)
Quarter: 2006Q2

REPORT INFORMATION
  Report Type: 
  Country: None (occurrence: None)
  Receive Date: 20060531
  Receipt Date: 20060531
  Transmission Date: 20061013
  Serious: Yes (Hospitalization)
  Sender: FDA-Public Use
  Company Number: None

PATIENT
  Age: 16 Year
  Sex: Male
  Weight: 75 kg

DRUGS (9)
  1. TRILEPTAL [Suspect]
     Dosage: 150 MG   TID   PO ONE WEEK PRIOR
     Route: 048
  2. VALPROIC ACID [Suspect]
     Dosage: 2G  BID  PO
     Route: 048
  3. CELEXA [Concomitant]
  4. DEPAKOTE [Concomitant]
  5. NIFEREX [Concomitant]
  6. . [Concomitant]
  7. SEROQUEL [Concomitant]
  8. GEODON [Concomitant]
  9. HALDOL [Concomitant]

REACTIONS (2)
  - DRUG HYPERSENSITIVITY [None]
  - DRUG RASH WITH EOSINOPHILIA AND SYSTEMIC SYMPTOMS [None]
